FAERS Safety Report 5015483-6 (Version None)
Quarter: 2006Q2

REPORT INFORMATION
  Report Type: 
  Country: None (occurrence: None)
  Receive Date: 20060530
  Receipt Date: 20060530
  Transmission Date: 20061013
  Serious: Yes (Other)
  Sender: FDA-Public Use
  Company Number: None

PATIENT
  Age: 59 Year
  Sex: Male
  Weight: 112.5 kg

DRUGS (17)
  1. TERAZOSIN HCL [Suspect]
  2. FUROSEMIDE [Concomitant]
  3. FINASTERIDE [Concomitant]
  4. NAPROXEN [Concomitant]
  5. OMEPRAZOLE [Concomitant]
  6. HYDROCODONE 5/ACETAMINOPHEN [Concomitant]
  7. PAROXETINE HCL [Concomitant]
  8. DIAZEPAM [Concomitant]
  9. PSYLLIUM [Concomitant]
  10. GABAPENTIN [Concomitant]
  11. LISINOPRIL [Concomitant]
  12. LEVETIRACETAM [Concomitant]
  13. CARBAMAZEPINE [Concomitant]
  14. TERBINAFINE HYDROCHLORIDE CREAM 1% [Concomitant]
  15. ASPIRIN [Concomitant]
  16. ATENOLOL [Concomitant]
  17. CLONIDINE HCL [Concomitant]

REACTIONS (1)
  - HYPOTENSION [None]
